FAERS Safety Report 12293253 (Version 1)
Quarter: 2016Q2

REPORT INFORMATION
  Report Type: Other
  Country: IT (occurrence: IT)
  Receive Date: 20160421
  Receipt Date: 20160421
  Transmission Date: 20160815
  Serious: Yes (Hospitalization)
  Sender: FDA-Public Use
  Company Number: IT-MYLANLABS-2016M1016561

PATIENT

DRUGS (1)
  1. ALPRAZOLAM. [Suspect]
     Active Substance: ALPRAZOLAM
     Indication: PRODUCT USED FOR UNKNOWN INDICATION
     Dosage: 10 ML, TOTAL
     Route: 048
     Dates: start: 20160203, end: 20160203

REACTIONS (3)
  - Bradykinesia [Recovering/Resolving]
  - Overdose [Unknown]
  - Drug abuse [Recovering/Resolving]

NARRATIVE: CASE EVENT DATE: 20160203
